FAERS Safety Report 15895197 (Version 1)
Quarter: 2019Q1

REPORT INFORMATION
  Report Type: Spontaneous
  Country: CN (occurrence: CN)
  Receive Date: 20190131
  Receipt Date: 20190131
  Transmission Date: 20190417
  Serious: Yes (Death, Other)
  Sender: FDA-Public Use
  Company Number: CN-ROCHE-2249780

PATIENT
  Age: 64 Year
  Sex: Male

DRUGS (13)
  1. HERCEPTIN [Suspect]
     Active Substance: TRASTUZUMAB
     Indication: ADENOCARCINOMA GASTRIC
     Dosage: ON DAY 1
     Route: 065
     Dates: start: 20150513, end: 20150925
  2. APATINIB [Concomitant]
     Active Substance: APATINIB
     Indication: ADENOCARCINOMA GASTRIC
     Route: 048
     Dates: start: 20160720
  3. CARBOPLATIN. [Concomitant]
     Active Substance: CARBOPLATIN
     Indication: ADENOCARCINOMA GASTRIC
     Dosage: ON DAY 1
     Route: 065
     Dates: start: 20160526
  4. CAPECITABINE. [Suspect]
     Active Substance: CAPECITABINE
     Indication: METASTASES TO LIVER
     Dosage: FROM DAY 1 TO DAY 14
     Route: 065
     Dates: start: 20170204
  5. CISPLATIN. [Concomitant]
     Active Substance: CISPLATIN
     Indication: ADENOCARCINOMA GASTRIC
     Dosage: FROM DAY 1 TO DAY 3
     Route: 065
     Dates: start: 20150513, end: 20150925
  6. DOCETAXEL. [Concomitant]
     Active Substance: DOCETAXEL
     Indication: METASTASES TO LIVER
  7. DOCETAXEL. [Concomitant]
     Active Substance: DOCETAXEL
     Indication: ADENOCARCINOMA GASTRIC
     Dosage: ON DAY 1
     Route: 065
     Dates: start: 20160526
  8. CAPECITABINE. [Suspect]
     Active Substance: CAPECITABINE
     Indication: ADENOCARCINOMA GASTRIC
     Dosage: FROM DAY 1 TO DAY 14
     Route: 065
     Dates: start: 20150513, end: 20150925
  9. CISPLATIN. [Concomitant]
     Active Substance: CISPLATIN
     Indication: METASTASES TO LIVER
  10. CARBOPLATIN. [Concomitant]
     Active Substance: CARBOPLATIN
     Indication: METASTASES TO LIVER
  11. APATINIB [Concomitant]
     Active Substance: APATINIB
     Indication: METASTASES TO LIVER
  12. HERCEPTIN [Suspect]
     Active Substance: TRASTUZUMAB
     Indication: METASTASES TO LIVER
     Dosage: ON DAY 1
     Route: 065
     Dates: start: 20150930
  13. IRINOTECAN [Concomitant]
     Active Substance: IRINOTECAN
     Dosage: ON DAY 1
     Route: 065
     Dates: start: 20170204

REACTIONS (8)
  - Bone marrow failure [Unknown]
  - Disseminated intravascular coagulation [Fatal]
  - Cough [Unknown]
  - Decreased appetite [Unknown]
  - Productive cough [Unknown]
  - Pyrexia [Unknown]
  - Gastrointestinal haemorrhage [Fatal]
  - Infection [Fatal]

NARRATIVE: CASE EVENT DATE: 2017
